FAERS Safety Report 17745992 (Version 2)
Quarter: 2020Q2

REPORT INFORMATION
  Report Type: Spontaneous
  Country: US (occurrence: US)
  Receive Date: 20200505
  Receipt Date: 20200512
  Transmission Date: 20200714
  Serious: No
  Sender: FDA-Public Use
  Company Number: US-SA-2020SA112369

PATIENT

DRUGS (1)
  1. DUPIXENT [Suspect]
     Active Substance: DUPILUMAB
     Indication: ASTHMA

REACTIONS (9)
  - Eye pain [Unknown]
  - Fatigue [Unknown]
  - Arthritis [Unknown]
  - Conjunctivitis [Unknown]
  - C-reactive protein increased [Unknown]
  - Arthralgia [Unknown]
  - Blood immunoglobulin G increased [Unknown]
  - Red blood cell sedimentation rate increased [Unknown]
  - Myalgia [Unknown]
